FAERS Safety Report 23975999 (Version 2)
Quarter: 2025Q1

REPORT INFORMATION
  Report Type: Spontaneous
  Country: US (occurrence: US)
  Receive Date: 20240614
  Receipt Date: 20250130
  Transmission Date: 20250409
  Serious: Yes (Other)
  Sender: MACLEODS
  Company Number: US-MACLEODS PHARMA-MAC2024047630

PATIENT

DRUGS (1)
  1. MONTELUKAST [Suspect]
     Active Substance: MONTELUKAST
     Indication: Asthma
     Route: 065

REACTIONS (3)
  - Substance-induced psychotic disorder [Recovering/Resolving]
  - Paranoia [Recovered/Resolved]
  - Insomnia [Recovered/Resolved]
